FAERS Safety Report 7689188-7 (Version None)
Quarter: 2011Q3

REPORT INFORMATION
  Report Type: 
  Country: None (occurrence: None)
  Receive Date: 20110817
  Receipt Date: 20110811
  Transmission Date: 20111222
  Serious: Yes (Death, Disabling, Other)
  Sender: FDA-Public Use
  Company Number: US-BRACCO-004819

PATIENT
  Sex: Male
  Weight: 100 kg

DRUGS (32)
  1. CONTRAST MEDIA [Suspect]
     Route: 042
     Dates: start: 20070213, end: 20070213
  2. CONTRAST MEDIA [Suspect]
     Route: 042
     Dates: start: 20070306, end: 20070306
  3. OMNISCAN [Suspect]
     Indication: DIAGNOSTIC PROCEDURE
     Route: 042
  4. MULTIHANCE [Suspect]
     Route: 042
  5. FUROSEMIDE [Concomitant]
  6. PROCRIT [Concomitant]
  7. MAGNEVIST [Suspect]
     Indication: NUCLEAR MAGNETIC RESONANCE IMAGING
  8. MAGNEVIST [Suspect]
  9. PROHANCE [Suspect]
     Indication: NUCLEAR MAGNETIC RESONANCE IMAGING
     Route: 042
  10. INSULIN [Concomitant]
  11. METOPROLOL TARTRATE [Concomitant]
  12. MULTIHANCE [Suspect]
     Route: 042
  13. RENAGEL [Concomitant]
  14. NEURONTIN [Concomitant]
  15. COUMADIN [Concomitant]
  16. FOSRENOL [Concomitant]
  17. CLONIDINE [Concomitant]
  18. CONTRAST MEDIA [Suspect]
     Indication: DIAGNOSTIC PROCEDURE
     Route: 042
     Dates: start: 20061207, end: 20061207
  19. CONTRAST MEDIA [Suspect]
     Route: 042
     Dates: start: 20061208, end: 20061208
  20. MAGNEVIST [Suspect]
  21. ARANESP [Concomitant]
  22. AMLODIPINE [Concomitant]
  23. CONTRAST MEDIA [Suspect]
     Route: 042
     Dates: start: 20070215, end: 20070215
  24. MAGNEVIST [Suspect]
     Indication: ANGIOGRAM
  25. EPOGEN [Concomitant]
  26. PHOSLO [Concomitant]
  27. OPTIMARK [Suspect]
     Indication: NUCLEAR MAGNETIC RESONANCE IMAGING
     Route: 042
  28. MULTIHANCE [Suspect]
     Indication: NUCLEAR MAGNETIC RESONANCE IMAGING
     Route: 042
  29. MULTIHANCE [Suspect]
     Indication: ANGIOGRAM
     Route: 042
  30. NITROGLYCERIN [Concomitant]
  31. BENAZEPRIL HYDROCHLORIDE [Concomitant]
  32. REQUIP [Concomitant]

REACTIONS (5)
  - ANHEDONIA [None]
  - ANXIETY [None]
  - RENAL INJURY [None]
  - NEPHROGENIC SYSTEMIC FIBROSIS [None]
  - DEPRESSION [None]
